FAERS Safety Report 8966096 (Version 2)
Quarter: 2013Q1

REPORT INFORMATION
  Report Type: Spontaneous
  Country: US (occurrence: US)
  Receive Date: 20121214
  Receipt Date: 20130123
  Transmission Date: 20140127
  Serious: No
  Sender: FDA-Public Use
  Company Number: US-009507513-1212USA004623

PATIENT
  Sex: Male
  Weight: 83.9 kg

DRUGS (6)
  1. CLARITIN REDITABS [Suspect]
     Indication: RHINORRHOEA
     Dosage: UNK, UNKNOWN
     Route: 048
     Dates: start: 20121105, end: 20121203
  2. CLARITIN REDITABS [Suspect]
     Indication: DRY EYE
  3. CLARITIN REDITABS [Suspect]
     Indication: SNEEZING
  4. ASPIRIN [Concomitant]
     Indication: PRODUCT USED FOR UNKNOWN INDICATION
  5. M ZED (METRONIDAZOLE) [Concomitant]
     Indication: PRODUCT USED FOR UNKNOWN INDICATION
     Dosage: 10 MG, UNK
  6. EXFORGE [Suspect]
     Indication: HYPERTENSION

REACTIONS (1)
  - Drug ineffective [Unknown]
